FAERS Safety Report 4428475-2 (Version None)
Quarter: 2004Q3

REPORT INFORMATION
  Report Type: 
  Country: None (occurrence: None)
  Receive Date: 20040813
  Receipt Date: 20040805
  Transmission Date: 20050211
  Serious: Yes (Disabling)
  Sender: FDA-Public Use
  Company Number: 2004SE02023

PATIENT
  Age: 54 Year
  Sex: Male
  Weight: 80 kg

DRUGS (11)
  1. BLOPRESS [Suspect]
     Indication: HYPERTENSION
     Dosage: 8 MG QD PO
     Route: 048
     Dates: start: 20030206, end: 20030903
  2. BLOPRESS [Suspect]
     Indication: HYPERTENSION
     Dosage: 8 MG QD PO
     Route: 048
     Dates: start: 20031112, end: 20040107
  3. DIGOXIN [Concomitant]
  4. FUROSEMIDE [Concomitant]
  5. SPIRONOLACTONE [Concomitant]
  6. VERAPAMIL HYDROCHLORIDE [Concomitant]
  7. PIRMENOL HYDROCHLORIDE [Concomitant]
  8. CARVEDILOL [Concomitant]
  9. FAMOTIDINE [Concomitant]
  10. TEPRENONE [Concomitant]
  11. WARFARIN SODIUM [Concomitant]

REACTIONS (7)
  - BLOOD CHOLESTEROL INCREASED [None]
  - BLOOD GLUCOSE INCREASED [None]
  - BLOOD PRESSURE INCREASED [None]
  - BLOOD TRIGLYCERIDES INCREASED [None]
  - GASTRIC ULCER [None]
  - LIPID METABOLISM DISORDER [None]
  - METABOLIC DISORDER [None]
